FAERS Safety Report 6444349-X (Version None)
Quarter: 2009Q4

REPORT INFORMATION
  Report Type: 
  Country: None (occurrence: None)
  Receive Date: 20091118
  Receipt Date: 20091111
  Transmission Date: 20100525
  Serious: Yes (Other)
  Sender: FDA-Public Use
  Company Number: US-ELI_LILLY_AND_COMPANY-US200911003081

PATIENT
  Sex: Male

DRUGS (6)
  1. HUMULIN N [Suspect]
     Indication: DIABETES MELLITUS
     Dosage: 35 U, 2/D
     Dates: start: 19820101, end: 20091101
  2. HUMULIN N [Suspect]
     Dosage: 35 U, 2/D
     Dates: start: 19820101, end: 20091101
  3. COUMADIN [Concomitant]
  4. COZAAR [Concomitant]
  5. ASPIRIN [Concomitant]
     Dosage: 81 MG, UNKNOWN
  6. ZETIA [Concomitant]
     Indication: BLOOD CHOLESTEROL

REACTIONS (6)
  - HEART RATE ABNORMAL [None]
  - INCREASED TENDENCY TO BRUISE [None]
  - INJECTION SITE HAEMATOMA [None]
  - INJECTION SITE NODULE [None]
  - INJECTION SITE PAIN [None]
  - PROSTATE CANCER [None]
